FAERS Safety Report 9988019 (Version 1)
Quarter: 2014Q1

REPORT INFORMATION
  Report Type: Report from Study
  Country: GB (occurrence: GB)
  Receive Date: 20140307
  Receipt Date: 20140307
  Transmission Date: 20141002
  Serious: Yes (Death, Hospitalization)
  Sender: FDA-Public Use
  Company Number: GB-009507513-1403GBR001041

PATIENT
  Age: 79 Year
  Sex: Male
  Weight: 59.4 kg

DRUGS (2)
  1. DEXAMETHASONE TABLETS BP 500MCG [Suspect]
     Indication: PLASMA CELL MYELOMA
     Dosage: 20 MG, DAYS ONE, TWO, FOUR, FIVE, EIGHT, NINE, 11, 12 EVERY 21 DAYS
     Route: 048
     Dates: start: 20130611, end: 20130920
  2. VELCADE [Suspect]
     Indication: PLASMA CELL MYELOMA
     Dosage: 1.2 MG/KG, DAYS ONE, FOUR, EIGHT 11 EVERY 21 DAY
     Route: 058
     Dates: start: 20130611, end: 20130920

REACTIONS (2)
  - Death [Fatal]
  - Liver function test abnormal [Unknown]
